FAERS Safety Report 8770834 (Version 3)
Quarter: 2012Q4

REPORT INFORMATION
  Report Type: 
  Country: US (occurrence: US)
  Receive Date: 20120906
  Receipt Date: 20121023
  Transmission Date: 20130627
  Serious: Yes (Other)
  Sender: FDA-Public Use
  Company Number: US-SANOFI-AVENTIS-2012SA061832

PATIENT
  Age: 22 Year
  Sex: Female
  Weight: 61.23 kg

DRUGS (9)
  1. LANTUS [Suspect]
     Indication: TYPE I DIABETES MELLITUS
     Dosage: Dose:26 unit(s)
     Route: 058
  2. LOSARTAN POTASSIUM [Concomitant]
     Indication: PROPHYLAXIS
  3. LEVOTHYROXINE [Concomitant]
     Indication: HYPOTHYROIDISM
  4. HUMALOG [Concomitant]
     Dosage: on slides scale Dose:3 unit(s)
     Dates: start: 199101
  5. NPH INSULIN [Concomitant]
     Dosage: on slides scale Dose:3.5 unit(s)
     Dates: start: 199101
  6. NASACORT AQ [Concomitant]
     Indication: ALLERGY MULTIPLE
     Dosage: 1 squirt in nostril in the morning.
  7. LORATADINE [Concomitant]
     Indication: ALLERGY MULTIPLE
  8. DIPHENHYDRAMINE HYDROCHLORIDE [Concomitant]
     Indication: ALLERGY MULTIPLE
     Dosage: one in the morning and one in the evening started in Spring 2012.
     Dates: start: 2012
  9. VITAMIN D3 [Concomitant]
     Dosage: July 20+or 2012.

REACTIONS (6)
  - Psychotic disorder [Recovered/Resolved]
  - Petit mal epilepsy [Unknown]
  - Abnormal behaviour [Unknown]
  - Unresponsive to stimuli [Unknown]
  - Blood glucose increased [Unknown]
  - Blood glucose decreased [Unknown]
